FAERS Safety Report 7469547-8 (Version None)
Quarter: 2011Q2

REPORT INFORMATION
  Report Type: 
  Country: None (occurrence: None)
  Receive Date: 20110510
  Receipt Date: 20110429
  Transmission Date: 20111010
  Serious: Yes (Other)
  Sender: FDA-Public Use
  Company Number: PHHY2011BR36589

PATIENT
  Age: 65 Year

DRUGS (2)
  1. GLEEVEC [Suspect]
     Dosage: 400 MG, DAILY
  2. GLEEVEC [Suspect]
     Dosage: 600 MG, DAILY

REACTIONS (1)
  - CYTOGENETIC ANALYSIS ABNORMAL [None]
